FAERS Safety Report 5273278-2 (Version None)
Quarter: 2007Q1

REPORT INFORMATION
  Report Type: 
  Country: None (occurrence: None)
  Receive Date: 20070319
  Receipt Date: 20070219
  Transmission Date: 20070707
  Serious: Yes (Death, Other)
  Sender: FDA-Public Use
  Company Number: 2007JP001054

PATIENT
  Age: 58 Year
  Sex: Male

DRUGS (8)
  1. PROGRAF [Suspect]
     Indication: LIVER TRANSPLANT
  2. RITUXIMAB (RITUXIMAB) [Concomitant]
  3. METHYLPREDNISOLONE [Concomitant]
  4. PREDNISOLONE [Concomitant]
  5. MYCOPHENOLATE MOFETIL [Concomitant]
  6. METHYLPREDNISOLONE [Concomitant]
  7. PROSTAGLANDIN E1 (ALPROSTADIL) INJECTION [Concomitant]
  8. HEPARIN [Concomitant]

REACTIONS (6)
  - ABDOMINAL ABSCESS [None]
  - BONE MARROW FAILURE [None]
  - PNEUMOCYSTIS JIROVECI INFECTION [None]
  - PNEUMONIA CYTOMEGALOVIRAL [None]
  - SEPSIS [None]
  - TRANSPLANT REJECTION [None]
